FAERS Safety Report 15477840 (Version 1)
Quarter: 2018Q4

REPORT INFORMATION
  Report Type: Spontaneous
  Country: US (occurrence: US)
  Receive Date: 20181002
  Receipt Date: 20181002
  Transmission Date: 20190205
  Serious: No
  Sender: FDA-Public Use
  Company Number: None

PATIENT
  Age: 23 Year
  Sex: Female
  Weight: 56.25 kg

DRUGS (1)
  1. TRI-PREVIFEM [Suspect]
     Active Substance: ETHINYL ESTRADIOL\NORGESTIMATE
     Indication: MENSTRUATION IRREGULAR
     Dosage: ?          QUANTITY:84 TABLET(S);?
     Route: 048
     Dates: start: 20180930

REACTIONS (5)
  - Mood altered [None]
  - Asthenia [None]
  - Loss of personal independence in daily activities [None]
  - Cognitive disorder [None]
  - Decreased appetite [None]

NARRATIVE: CASE EVENT DATE: 20181002
